FAERS Safety Report 5839877-1 (Version None)
Quarter: 2008Q3

REPORT INFORMATION
  Report Type: 
  Country: None (occurrence: None)
  Receive Date: 20080811
  Receipt Date: 20080526
  Transmission Date: 20090109
  Serious: No
  Sender: FDA-Public Use
  Company Number: US-BAYER-200819915NA

PATIENT
  Age: 61 Year
  Sex: Male

DRUGS (6)
  1. LEVITRA [Suspect]
     Indication: ERECTILE DYSFUNCTION
     Dosage: TOTAL DAILY DOSE: 15 MG
     Route: 048
     Dates: start: 20080410, end: 20080410
  2. LEVITRA [Suspect]
     Dosage: TOTAL DAILY DOSE: 5 MG
     Route: 048
     Dates: start: 20080301, end: 20080301
  3. LEVITRA [Suspect]
     Dosage: TOTAL DAILY DOSE: 10 MG
     Route: 048
     Dates: start: 20080301, end: 20080301
  4. LOPRESSOR [Concomitant]
  5. ZOCOR [Concomitant]
  6. TRAZODONE HCL [Concomitant]

REACTIONS (2)
  - ERECTILE DYSFUNCTION [None]
  - HEADACHE [None]
